FAERS Safety Report 11010646 (Version 2)
Quarter: 2015Q3

REPORT INFORMATION
  Report Type: Spontaneous
  Country: US (occurrence: US)
  Receive Date: 20150410
  Receipt Date: 20150908
  Transmission Date: 20151125
  Serious: Yes (Hospitalization, Other)
  Sender: FDA-Public Use
  Company Number: US-MERCK-1504USA003874

PATIENT
  Sex: Male
  Weight: 83.9 kg

DRUGS (4)
  1. ASPIRIN. [Concomitant]
     Active Substance: ASPIRIN
     Indication: CARDIOVASCULAR EVENT PROPHYLAXIS
     Dosage: UNK
     Dates: start: 2005
  2. LISINOPRIL. [Concomitant]
     Active Substance: LISINOPRIL
     Indication: HYPERTENSION
     Dosage: UNK
     Dates: start: 2011, end: 201505
  3. VITAMIN D [Concomitant]
     Active Substance: CHOLECALCIFEROL
     Indication: ROUTINE HEALTH MAINTENANCE
     Dosage: UNK
     Dates: start: 2010
  4. JANUVIA [Suspect]
     Active Substance: SITAGLIPTIN PHOSPHATE
     Indication: TYPE 2 DIABETES MELLITUS
     Dosage: 100 MG, QD
     Route: 048
     Dates: start: 2009, end: 2014

REACTIONS (21)
  - Chest pain [Unknown]
  - Retinopathy [Recovered/Resolved]
  - Prostatic specific antigen increased [Unknown]
  - Vasectomy [Unknown]
  - Metastases to liver [Unknown]
  - Gingivitis [Unknown]
  - Periodontal disease [Unknown]
  - Atelectasis [Unknown]
  - Macular oedema [Recovered/Resolved]
  - Syncope [Unknown]
  - Spinal osteoarthritis [Unknown]
  - Hyperlipidaemia [Unknown]
  - Drug intolerance [Unknown]
  - Blindness [Recovered/Resolved]
  - Renal cyst [Unknown]
  - Bladder disorder [Unknown]
  - Pancreatic neuroendocrine tumour metastatic [Unknown]
  - Perineurial cyst [Unknown]
  - Tonsillectomy [Unknown]
  - Diverticulum [Unknown]
  - Localised intraabdominal fluid collection [Unknown]

NARRATIVE: CASE EVENT DATE: 20130421
